FAERS Safety Report 8124654-1 (Version None)
Quarter: 2012Q1

REPORT INFORMATION
  Report Type: 
  Country: None (occurrence: None)
  Receive Date: 20120209
  Receipt Date: 20120209
  Transmission Date: 20120608
  Serious: Yes (Other)
  Sender: FDA-Public Use
  Company Number: None

PATIENT
  Age: 16 Year
  Sex: Female
  Weight: 56.699 kg

DRUGS (1)
  1. CIPROFLOXACIN [Suspect]
     Indication: BACTERIAL INFECTION
     Dosage: 1 TABLET
     Route: 048
     Dates: start: 20120202, end: 20120204

REACTIONS (1)
  - TENDONITIS [None]
